FAERS Safety Report 11314335 (Version 5)
Quarter: 2017Q4

REPORT INFORMATION
  Report Type: Spontaneous
  Country: JP (occurrence: JP)
  Receive Date: 20150727
  Receipt Date: 20171107
  Transmission Date: 20180320
  Serious: Yes (Death, Other)
  Sender: FDA-Public Use
  Company Number: JP-PFIZER INC-2015243189

PATIENT
  Age: 4 Decade
  Sex: Female

DRUGS (4)
  1. TRIAZOLAM. [Suspect]
     Active Substance: TRIAZOLAM
     Dosage: UNK
  2. NITRAZEPAM [Suspect]
     Active Substance: NITRAZEPAM
     Dosage: UNK
  3. DIPHENIDINE [Suspect]
     Active Substance: DIPHENIDINE
     Dosage: UNK
  4. FLUNITRAZEPAM [Suspect]
     Active Substance: FLUNITRAZEPAM
     Dosage: UNK

REACTIONS (3)
  - Oedema [Unknown]
  - Toxicity to various agents [Fatal]
  - Pulmonary congestion [Unknown]
